FAERS Safety Report 6127268-8 (Version None)
Quarter: 2009Q1

REPORT INFORMATION
  Report Type: 
  Country: None (occurrence: None)
  Receive Date: 20090319
  Receipt Date: 20090305
  Transmission Date: 20090719
  Serious: Yes (Hospitalization)
  Sender: FDA-Public Use
  Company Number: 02100-JPN-07-0435

PATIENT
  Age: 64 Year
  Sex: Male

DRUGS (6)
  1. PLAVIX [Suspect]
     Indication: CEREBRAL INFARCTION
     Dosage: 75 MG, DAILY DOSE, ORAL
     Route: 048
     Dates: start: 20050818, end: 20060317
  2. PLETAL [Suspect]
     Indication: CEREBRAL INFARCTION
     Dosage: 200 MG, DAILY DOSE, ORAL
     Route: 048
     Dates: start: 20070616
  3. ASPIRIN [Concomitant]
  4. METFORMIN HCL [Concomitant]
  5. ATENOLOL [Concomitant]
  6. PRAVASTATIN SODIUM [Concomitant]

REACTIONS (1)
  - RENAL CELL CARCINOMA [None]
